FAERS Safety Report 8345925-X (Version None)
Quarter: 2012Q2

REPORT INFORMATION
  Report Type: 
  Country: None (occurrence: None)
  Receive Date: 20120509
  Receipt Date: 20120426
  Transmission Date: 20120825
  Serious: Yes (Death, Life-Threatening, Hospitalization, Other)
  Sender: FDA-Public Use
  Company Number: FR-VERTEX PHARMACEUTICALS INC.-AE-2011-000432

PATIENT
  Sex: Male
  Weight: 88 kg

DRUGS (27)
  1. RIBAVIRIN [Concomitant]
     Indication: HEPATITIS C
     Route: 048
     Dates: start: 20110509, end: 20110901
  2. ATARAX [Concomitant]
     Indication: INSOMNIA
     Route: 048
     Dates: start: 20110901
  3. ACUPAN [Concomitant]
     Indication: PRODUCT USED FOR UNKNOWN INDICATION
  4. ALFUZOSIN HCL [Concomitant]
     Indication: PRODUCT USED FOR UNKNOWN INDICATION
  5. MOTILIUM [Concomitant]
     Indication: NAUSEA
     Dates: start: 20110901, end: 20110928
  6. AUGMENTIN [Concomitant]
     Indication: ANTIBIOTIC THERAPY
     Dates: start: 20110923, end: 20110928
  7. ACETAMINOPHEN [Concomitant]
     Indication: PRODUCT USED FOR UNKNOWN INDICATION
  8. ATARAX [Concomitant]
     Indication: ANXIETY
  9. NEXIUM [Concomitant]
     Indication: ULCER
     Dates: start: 20110901
  10. FOLIC ACID [Concomitant]
     Indication: PRODUCT USED FOR UNKNOWN INDICATION
  11. OMEPRAZOLE [Concomitant]
     Indication: PRODUCT USED FOR UNKNOWN INDICATION
  12. TRAMADOL HCL [Concomitant]
     Indication: PAIN
  13. OXAZEPAM [Concomitant]
     Indication: ANXIETY
     Dates: start: 20041001
  14. OXAZEPAM [Concomitant]
     Dates: start: 20040101
  15. POTASSIUM CHLORIDE [Concomitant]
     Indication: BLOOD POTASSIUM
     Dates: start: 20110901
  16. LASIX [Concomitant]
     Indication: PRODUCT USED FOR UNKNOWN INDICATION
  17. OXYCONTIN [Concomitant]
     Indication: PRODUCT USED FOR UNKNOWN INDICATION
  18. RULID [Concomitant]
     Indication: ANTIBIOTIC THERAPY
     Dates: start: 20110923, end: 20110928
  19. VX-950 [Suspect]
     Indication: HEPATITIS C
     Route: 048
     Dates: start: 20110509, end: 20110801
  20. FOLIC ACID [Concomitant]
  21. NEORECORMON [Concomitant]
     Indication: ANAEMIA
     Dates: start: 20110804
  22. PEGASYS [Concomitant]
     Indication: HEPATITIS C
     Route: 058
     Dates: start: 20110509, end: 20110901
  23. TRAMADOL HCL [Concomitant]
     Indication: OSTEOARTHRITIS
     Dates: start: 20101001
  24. EQUANIL [Concomitant]
     Indication: ANXIETY
     Dates: start: 20040101
  25. PREDNISONE TAB [Concomitant]
     Indication: STEROID THERAPY
     Dates: start: 20110901
  26. ALUMINUM HYDROXIDE AND MAGNESIUM TRISILICATE [Concomitant]
     Indication: PRODUCT USED FOR UNKNOWN INDICATION
  27. OXYCODONE HCL [Concomitant]
     Indication: PRODUCT USED FOR UNKNOWN INDICATION

REACTIONS (7)
  - PANCYTOPENIA [None]
  - NEUTROPENIA [None]
  - NAUSEA [None]
  - ASTHENIA [None]
  - CHEST PAIN [None]
  - LUNG NEOPLASM MALIGNANT [None]
  - LUNG DISORDER [None]
